FAERS Safety Report 4357868-7 (Version None)
Quarter: 2004Q2

REPORT INFORMATION
  Report Type: 
  Country: None (occurrence: None)
  Receive Date: 20040513
  Receipt Date: 20040513
  Transmission Date: 20050107
  Serious: Yes (Disabling)
  Sender: FDA-Public Use
  Company Number: None

PATIENT
  Age: 49 Year
  Sex: Female
  Weight: 82.5547 kg

DRUGS (2)
  1. EFFEXOR [Suspect]
     Indication: ANXIETY DISORDER
     Dosage: 450 PER DAY OTHER
     Route: 050
  2. EFFEXOR [Suspect]
     Indication: DEPRESSION
     Dosage: 450 PER DAY OTHER
     Route: 050

REACTIONS (9)
  - ANGER [None]
  - DEPRESSED MOOD [None]
  - DISCOMFORT [None]
  - DRUG INEFFECTIVE [None]
  - FEELING ABNORMAL [None]
  - IRRITABILITY [None]
  - MENTAL DISORDER [None]
  - NAUSEA [None]
  - SUICIDAL IDEATION [None]
